FAERS Safety Report 11800720 (Version 1)
Quarter: 2015Q4

REPORT INFORMATION
  Report Type: Spontaneous
  Country: FR (occurrence: FR)
  Receive Date: 20151204
  Receipt Date: 20151204
  Transmission Date: 20160305
  Serious: Yes (Death, Hospitalization)
  Sender: FDA-Public Use
  Company Number: FR-ROCHE-1671081

PATIENT
  Age: 43 Year
  Sex: Female

DRUGS (16)
  1. DEXAMETHASONE. [Concomitant]
     Active Substance: DEXAMETHASONE
     Dosage: 4 CYCLES
     Route: 065
     Dates: start: 2012
  2. MABTHERA [Suspect]
     Active Substance: RITUXIMAB
     Indication: LYMPHOMA
     Dosage: IN MAINTENANCE EVERY 2 MONTHS (12 CYCLES), LAST COURSE RECEIVED ON 08/JUN/2015.
     Route: 042
     Dates: start: 20080908, end: 20150608
  3. TOPALGIC (FRANCE) [Concomitant]
     Active Substance: TRAMADOL
  4. NEFOPAM HYDROCHLORIDE [Concomitant]
     Active Substance: NEFOPAM HYDROCHLORIDE
  5. CARMUSTINE [Concomitant]
     Active Substance: CARMUSTINE
     Route: 065
     Dates: start: 2013
  6. MELPHALAN [Concomitant]
     Active Substance: MELPHALAN
     Route: 065
     Dates: start: 2013
  7. CACIT VITAMINE D3 [Concomitant]
     Active Substance: CALCIUM CARBONATE\CHOLECALCIFEROL
  8. DOXORUBICIN [Concomitant]
     Active Substance: DOXORUBICIN
     Dosage: 4 CYCLES
     Route: 065
     Dates: start: 2012
  9. CORTANCYL [Concomitant]
     Active Substance: PREDNISONE
  10. ETOPOSIDE. [Concomitant]
     Active Substance: ETOPOSIDE
     Dosage: CYCLE 1
     Route: 065
     Dates: start: 2009
  11. CARBOPLATIN. [Concomitant]
     Active Substance: CARBOPLATIN
     Dosage: CYCLE 1
     Route: 065
     Dates: start: 2009
  12. ARA-C [Concomitant]
     Active Substance: CYTARABINE
     Route: 065
     Dates: start: 2012
  13. SPECIAFOLDINE [Concomitant]
     Active Substance: FOLIC ACID
  14. ZELITREX [Concomitant]
     Active Substance: VALACYCLOVIR HYDROCHLORIDE
  15. EUPANTOL [Concomitant]
     Active Substance: PANTOPRAZOLE SODIUM
  16. IFOSFAMIDE. [Concomitant]
     Active Substance: IFOSFAMIDE
     Dosage: CYCLE 1
     Route: 065
     Dates: start: 2009

REACTIONS (2)
  - Hyperammonaemia [Fatal]
  - Encephalopathy [Fatal]

NARRATIVE: CASE EVENT DATE: 20150711
